FAERS Safety Report 7104084-1 (Version None)
Quarter: 2010Q4

REPORT INFORMATION
  Report Type: 
  Country: None (occurrence: None)
  Receive Date: 20101115
  Receipt Date: 20100520
  Transmission Date: 20110411
  Serious: Yes (Other)
  Sender: FDA-Public Use
  Company Number: US-ALLERGAN-1006686US

PATIENT
  Age: 37 Year
  Sex: Female
  Weight: 60.1 kg

DRUGS (6)
  1. BOTOXA? [Suspect]
     Indication: TORTICOLLIS
     Dosage: 360 UNITS, SINGLE
     Route: 030
     Dates: start: 20100408, end: 20100408
  2. BOTOXA? [Suspect]
     Dosage: 200 UNITS, SINGLE
     Dates: start: 20100317, end: 20100317
  3. PERCOCET [Concomitant]
     Indication: PAIN
  4. BACLOFEN [Concomitant]
     Indication: MUSCLE SPASTICITY
  5. VALIUM [Concomitant]
     Indication: MUSCLE RELAXANT THERAPY
  6. DEPO-PROVERA [Concomitant]
     Indication: CONTRACEPTION

REACTIONS (2)
  - MUSCLE SPASMS [None]
  - MUSCULAR WEAKNESS [None]
